FAERS Safety Report 9507129 (Version 1)
Quarter: 2013Q1

REPORT INFORMATION
  Report Type: Spontaneous
  Country: US (occurrence: None)
  Receive Date: 20130305
  Receipt Date: 20130305
  Transmission Date: 20140127
  Serious: Yes (Other)
  Sender: FDA-Public Use
  Company Number: 163-21880-12050586

PATIENT
  Age: 90 Year
  Sex: Male

DRUGS (10)
  1. REVLIMID [Suspect]
     Indication: PLASMA CELL MYELOMA
     Dosage: 10 MG, 14 IN 14 D, PO
     Route: 048
     Dates: start: 20120214, end: 2012
  2. CEMILL PLUS (DUO-C.V.P.) [Concomitant]
  3. VITAMIN D (ERGOCALCIFEROL) [Concomitant]
  4. CALTRATE 600 (CALCITE D) [Concomitant]
  5. AEROBID (FLUNISOLIDE) [Concomitant]
  6. NAMENDA (MEMANTINE HYDROCHLORIDE) [Concomitant]
  7. VITAMIN B12 (CYANOCOBALAMIN) [Concomitant]
  8. ACTONEL (RISEDRONATE SODIUM) [Concomitant]
  9. XALATAN (LATANOPROST) [Concomitant]
  10. COSOPT (COSPOT) [Concomitant]

REACTIONS (4)
  - Asthenia [None]
  - Asthenia [None]
  - Nausea [None]
  - Diarrhoea [None]
